FAERS Safety Report 21670852 (Version 1)
Quarter: 2022Q4

REPORT INFORMATION
  Report Type: Spontaneous
  Country: JP (occurrence: JP)
  Receive Date: 20221202
  Receipt Date: 20221202
  Transmission Date: 20230113
  Serious: Yes (Death, Hospitalization, Other)
  Sender: FDA-Public Use
  Company Number: JP-BAXTER-2022BAX025690

PATIENT
  Age: 18 Year
  Sex: Male

DRUGS (14)
  1. IFOSFAMIDE [Suspect]
     Active Substance: IFOSFAMIDE
     Indication: Malignant neoplasm of spermatic cord
     Dosage: UNK
     Route: 065
     Dates: start: 2021, end: 2021
  2. IFOSFAMIDE [Suspect]
     Active Substance: IFOSFAMIDE
     Indication: Metastases to bone
  3. IFOSFAMIDE [Suspect]
     Active Substance: IFOSFAMIDE
     Indication: Metastases to lung
  4. IFOSFAMIDE [Suspect]
     Active Substance: IFOSFAMIDE
     Indication: Undifferentiated sarcoma
  5. DOXORUBICIN [Suspect]
     Active Substance: DOXORUBICIN
     Indication: Metastases to lung
     Route: 065
  6. DOXORUBICIN [Suspect]
     Active Substance: DOXORUBICIN
     Indication: Malignant neoplasm of spermatic cord
     Dosage: DOSAGE CHANGED TO TOTAL 4 CYCLES
     Route: 065
     Dates: end: 202105
  7. DOXORUBICIN [Suspect]
     Active Substance: DOXORUBICIN
     Indication: Metastases to bone
     Dosage: UNK
     Route: 065
     Dates: start: 2021
  8. DOXORUBICIN [Suspect]
     Active Substance: DOXORUBICIN
     Indication: Undifferentiated sarcoma
     Dosage: DOSAGE CHANGED TO 2 CYCLES
     Route: 065
     Dates: start: 20210202
  9. DABRAFENIB MESYLATE [Concomitant]
     Active Substance: DABRAFENIB MESYLATE
     Indication: Soft tissue sarcoma
     Dosage: 600 MG/DAY
     Route: 065
  10. DABRAFENIB MESYLATE [Concomitant]
     Active Substance: DABRAFENIB MESYLATE
     Indication: BRAF V600E mutation positive
     Dosage: 400 MG/DAY
     Route: 065
  11. DABRAFENIB MESYLATE [Concomitant]
     Active Substance: DABRAFENIB MESYLATE
     Indication: Malignant neoplasm of spermatic cord
     Dosage: 200 MG/DAY
     Route: 065
  12. TRAMETINIB DIMETHYL SULFOXIDE [Concomitant]
     Active Substance: TRAMETINIB DIMETHYL SULFOXIDE
     Indication: Soft tissue sarcoma
     Dosage: 2 MG/DAY
     Route: 065
  13. TRAMETINIB DIMETHYL SULFOXIDE [Concomitant]
     Active Substance: TRAMETINIB DIMETHYL SULFOXIDE
     Indication: BRAF V600E mutation positive
     Dosage: 1.5 MG/DAY
     Route: 065
  14. TRAMETINIB DIMETHYL SULFOXIDE [Concomitant]
     Active Substance: TRAMETINIB DIMETHYL SULFOXIDE
     Indication: Malignant neoplasm of spermatic cord
     Dosage: UNK
     Route: 065

REACTIONS (9)
  - Respiratory failure [Fatal]
  - Disease progression [Fatal]
  - Metastases to pleura [Fatal]
  - Decreased appetite [Unknown]
  - Paraplegia [Unknown]
  - Febrile neutropenia [Unknown]
  - Haematuria [Unknown]
  - Neutropenia [Unknown]
  - Diplopia [Unknown]

NARRATIVE: CASE EVENT DATE: 20210101
